FAERS Safety Report 5422277-6 (Version None)
Quarter: 2007Q3

REPORT INFORMATION
  Report Type: 
  Country: None (occurrence: None)
  Receive Date: 20070820
  Receipt Date: 20070820
  Transmission Date: 20080115
  Serious: Yes (Life-Threatening, Hospitalization, Other)
  Sender: FDA-Public Use
  Company Number: None

PATIENT
  Age: 60 Year
  Sex: Male
  Weight: 94.3482 kg

DRUGS (1)
  1. CORDIS CYPHER STENT CORDIS -JOHNSON+JOHNSON- [Suspect]
     Indication: CORONARY ARTERY OCCLUSION
     Dates: start: 20031017, end: 20070706

REACTIONS (2)
  - IMPLANT SITE SCAR [None]
  - STENT OCCLUSION [None]
